FAERS Safety Report 25383228 (Version 1)
Quarter: 2025Q2

REPORT INFORMATION
  Report Type: Report from Study
  Country: US (occurrence: US)
  Receive Date: 20250602
  Receipt Date: 20250602
  Transmission Date: 20250717
  Serious: Yes (Other)
  Sender: AUROBINDO
  Company Number: US-AUROBINDO-AUR-APL-2022-025425

PATIENT
  Age: 47 Year
  Sex: Female

DRUGS (20)
  1. DEXAMETHASONE [Suspect]
     Active Substance: DEXAMETHASONE
     Indication: Plasma cell myeloma
     Route: 065
  2. DEXAMETHASONE [Suspect]
     Active Substance: DEXAMETHASONE
     Indication: Tumour lysis syndrome
  3. POMALIDOMIDE [Suspect]
     Active Substance: POMALIDOMIDE
     Indication: Plasma cell myeloma
     Route: 065
     Dates: start: 201507
  4. POMALIDOMIDE [Suspect]
     Active Substance: POMALIDOMIDE
     Indication: Tumour lysis syndrome
  5. SELINEXOR [Suspect]
     Active Substance: SELINEXOR
     Indication: Plasma cell myeloma
     Dosage: 60 MILLIGRAM, EVERY WEEK
     Route: 065
     Dates: start: 202001
  6. SELINEXOR [Suspect]
     Active Substance: SELINEXOR
     Dosage: 20 MILLIGRAM, EVERY WEEK
     Route: 065
     Dates: start: 202001
  7. SELINEXOR [Suspect]
     Active Substance: SELINEXOR
     Dosage: 40 MILLIGRAM, EVERY WEEK
     Route: 065
     Dates: start: 202001, end: 202006
  8. LENALIDOMIDE [Suspect]
     Active Substance: LENALIDOMIDE
     Indication: Plasma cell myeloma
     Route: 065
     Dates: start: 201507
  9. CARFILZOMIB [Suspect]
     Active Substance: CARFILZOMIB
     Indication: Plasma cell myeloma
     Route: 065
     Dates: start: 201507
  10. CARFILZOMIB [Suspect]
     Active Substance: CARFILZOMIB
     Indication: Tumour lysis syndrome
  11. IXAZOMIB [Suspect]
     Active Substance: IXAZOMIB
     Indication: Plasma cell myeloma
     Route: 065
  12. IXAZOMIB [Suspect]
     Active Substance: IXAZOMIB
     Indication: Tumour lysis syndrome
  13. DARATUMUMAB [Suspect]
     Active Substance: DARATUMUMAB
     Indication: Plasma cell myeloma
     Route: 065
     Dates: start: 201507
  14. DARATUMUMAB [Suspect]
     Active Substance: DARATUMUMAB
     Indication: Tumour lysis syndrome
  15. PANOBINOSTAT [Suspect]
     Active Substance: PANOBINOSTAT
     Indication: Plasma cell myeloma
     Route: 065
     Dates: start: 201507
  16. PANOBINOSTAT [Suspect]
     Active Substance: PANOBINOSTAT
     Indication: Tumour lysis syndrome
  17. RASBURICASE [Suspect]
     Active Substance: RASBURICASE
     Indication: Plasma cell myeloma
     Route: 042
  18. RASBURICASE [Suspect]
     Active Substance: RASBURICASE
     Indication: Tumour lysis syndrome
  19. BORTEZOMIB [Concomitant]
     Active Substance: BORTEZOMIB
     Indication: Product used for unknown indication
     Route: 065
  20. MELPHALAN FLUFENAMIDE HYDROCHLORIDE [Concomitant]
     Active Substance: MELPHALAN FLUFENAMIDE HYDROCHLORIDE
     Indication: Product used for unknown indication
     Route: 065

REACTIONS (3)
  - Drug ineffective [Unknown]
  - Cytopenia [Unknown]
  - Toxicity to various agents [Unknown]
